APPROVED DRUG PRODUCT: CARBOPLATIN
Active Ingredient: CARBOPLATIN
Strength: 50MG/VIAL
Dosage Form/Route: INJECTABLE;INJECTION
Application: A076235 | Product #001
Applicant: FRESENIUS KABI USA LLC
Approved: Oct 14, 2004 | RLD: No | RS: No | Type: DISCN